FAERS Safety Report 6493307-8 (Version None)
Quarter: 2009Q4

REPORT INFORMATION
  Report Type: 
  Country: None (occurrence: None)
  Receive Date: 20091214
  Receipt Date: 20091202
  Transmission Date: 20100525
  Serious: Yes (Disabling)
  Sender: FDA-Public Use
  Company Number: US-ROCHE-671624

PATIENT
  Sex: Female
  Weight: 49.4 kg

DRUGS (4)
  1. BEVACIZUMAB [Suspect]
     Indication: NON-SMALL CELL LUNG CANCER
     Dosage: 15 MG/KG, Q3W
     Route: 042
     Dates: start: 20090219, end: 20090922
  2. BEVACIZUMAB [Suspect]
     Dosage: 15 MG/KG, Q3W
     Route: 042
     Dates: start: 20090219, end: 20090922
  3. CARBOPLATIN [Concomitant]
     Indication: NON-SMALL CELL LUNG CANCER
     Dosage: 5 AUC, Q3W
     Route: 042
     Dates: start: 20090219
  4. GEMCITABINE [Concomitant]
     Indication: NON-SMALL CELL LUNG CANCER
     Dosage: 1000 MG/M2, DAY1+AMP;8/Q3W
     Route: 042
     Dates: start: 20090219

REACTIONS (1)
  - OPTIC ISCHAEMIC NEUROPATHY [None]
